FAERS Safety Report 23172873 (Version 1)
Quarter: 2023Q4

REPORT INFORMATION
  Report Type: Spontaneous
  Country: FR (occurrence: FR)
  Receive Date: 20231110
  Receipt Date: 20231110
  Transmission Date: 20240109
  Serious: Yes (Death, Other)
  Sender: FDA-Public Use
  Company Number: FR-JNJFOC-20231073320

PATIENT
  Age: 73 Year
  Sex: Male

DRUGS (3)
  1. DEXAMETHASONE [Suspect]
     Active Substance: DEXAMETHASONE
     Indication: Plasma cell myeloma
     Dosage: FIFTH LINE NUMBER,
     Route: 065
     Dates: end: 20210805
  2. DOXORUBICIN [Suspect]
     Active Substance: DOXORUBICIN
     Indication: Plasma cell myeloma
     Dosage: FIFTH LINE NUMBER,
     Route: 065
     Dates: end: 20210805
  3. VELCADE [Suspect]
     Active Substance: BORTEZOMIB
     Indication: Plasma cell myeloma
     Dosage: FIFTH LINE NUMBER, 2 DOSES/WEEK 2 WEEK(S
     Route: 065
     Dates: end: 20210805

REACTIONS (6)
  - Death [Fatal]
  - Endocarditis [Unknown]
  - Intervertebral discitis [Unknown]
  - Gastroenteritis [Unknown]
  - Intentional product use issue [Unknown]
  - Off label use [Unknown]
